FAERS Safety Report 23830265 (Version 1)
Quarter: 2024Q2

REPORT INFORMATION
  Report Type: Spontaneous
  Country: CA (occurrence: CA)
  Receive Date: 20240508
  Receipt Date: 20240508
  Transmission Date: 20240716
  Serious: Yes (Other)
  Sender: FDA-Public Use
  Company Number: CA-AUROBINDO-AUR-APL-2024-021169

PATIENT
  Age: 80 Year
  Sex: Female

DRUGS (2)
  1. MONTELUKAST [Suspect]
     Active Substance: MONTELUKAST SODIUM
     Indication: Chronic spontaneous urticaria
     Dosage: 10.0 MILLIGRAM, ONCE A DAY
     Route: 065
  2. BILASTINE [Suspect]
     Active Substance: BILASTINE
     Indication: Urticaria
     Dosage: 20.0 MILLIGRAM, ONCE A DAY
     Route: 065

REACTIONS (6)
  - Dementia Alzheimer^s type [Unknown]
  - Feeling hot [Unknown]
  - Pruritus [Unknown]
  - Rash [Unknown]
  - Urticaria [Unknown]
  - Drug ineffective [Unknown]
